FAERS Safety Report 8063947-3 (Version None)
Quarter: 2012Q1

REPORT INFORMATION
  Report Type: 
  Country: None (occurrence: None)
  Receive Date: 20120123
  Receipt Date: 20120115
  Transmission Date: 20120608
  Serious: Yes (Other)
  Sender: FDA-Public Use
  Company Number: PHHY2012FR003026

PATIENT
  Age: 10 Year
  Sex: Female
  Weight: 30 kg

DRUGS (1)
  1. VOLTAREN [Suspect]
     Dosage: 1 DF, QD
     Route: 054
     Dates: start: 20111209

REACTIONS (3)
  - DRUG DISPENSING ERROR [None]
  - DRUG ADMINISTRATION ERROR [None]
  - ABDOMINAL PAIN UPPER [None]
